FAERS Safety Report 5372441-X (Version None)
Quarter: 2007Q2

REPORT INFORMATION
  Report Type: 
  Country: None (occurrence: None)
  Receive Date: 20070627
  Receipt Date: 20070413
  Transmission Date: 20071010
  Serious: Yes (Life-Threatening, Hospitalization)
  Sender: FDA-Public Use
  Company Number: PHHO2006FR08075

PATIENT
  Age: 50 Year
  Sex: Female

DRUGS (5)
  1. ALISKIREN VS PLACEBO [Suspect]
     Indication: HYPERTENSION
     Route: 048
     Dates: start: 20060112, end: 20060427
  2. ALISKIREN VS PLACEBO [Suspect]
     Route: 048
     Dates: start: 20060510
  3. LOSARTAN POTASSIUM [Suspect]
     Indication: HYPERTENSION
     Dosage: NOT REPORTED
     Route: 048
     Dates: end: 20060427
  4. LOSARTAN POTASSIUM [Suspect]
     Dosage: NOT REPORTED
     Route: 048
     Dates: start: 20060510
  5. METFORMIN HCL [Suspect]
     Indication: DIABETES MELLITUS
     Dosage: 850 MG, TID
     Route: 048
     Dates: end: 20060428

REACTIONS (10)
  - ANOREXIA [None]
  - COLITIS [None]
  - DEHYDRATION [None]
  - DIARRHOEA [None]
  - DRUG TOXICITY [None]
  - GASTROENTERITIS [None]
  - LACTIC ACIDOSIS [None]
  - PYREXIA [None]
  - RENAL FAILURE ACUTE [None]
  - VOMITING [None]
